FAERS Safety Report 25464079 (Version 1)
Quarter: 2025Q2

REPORT INFORMATION
  Report Type: Spontaneous
  Country: GB (occurrence: GB)
  Receive Date: 20250621
  Receipt Date: 20250621
  Transmission Date: 20250717
  Serious: Yes (Other)
  Sender: AUROBINDO
  Company Number: GB-MHRA-MED-202506051330223160-VYDWL

PATIENT
  Age: 71 Year
  Sex: Female
  Weight: 59 kg

DRUGS (1)
  1. RIVAROXABAN [Suspect]
     Active Substance: RIVAROXABAN
     Indication: Adverse drug reaction
     Route: 065
     Dates: start: 20240726, end: 20240801

REACTIONS (4)
  - Urinary incontinence [Not Recovered/Not Resolved]
  - Orthostatic hypotension [Unknown]
  - Tachycardia [Unknown]
  - Fatigue [Unknown]
